FAERS Safety Report 7677210-3 (Version None)
Quarter: 2011Q3

REPORT INFORMATION
  Report Type: 
  Country: None (occurrence: None)
  Receive Date: 20110811
  Receipt Date: 20110808
  Transmission Date: 20111222
  Serious: Yes (Life-Threatening, Hospitalization)
  Sender: FDA-Public Use
  Company Number: DE-ROCHE-778233

PATIENT
  Sex: Male
  Weight: 94 kg

DRUGS (2)
  1. OXALIPLATIN [Suspect]
     Indication: COLORECTAL CANCER
     Dosage: DOSE: 50MG/M2 ON DAY 1, 8, 15, 22 AND 29, THERAPY DELAYED, LAST DOSE PRIOR TO SAE: 7 MAR 2011
     Route: 042
     Dates: start: 20110207
  2. CAPECITABINE [Suspect]
     Indication: COLORECTAL CANCER
     Dosage: DOSE:825MG/M2BID D1-33 W/O WEEKENDS+OPTIONAL BOOST,DOSE PRIOR TO SAE:7MAR2011,ACTUAL DOSE:3000MG/DAY
     Route: 048
     Dates: start: 20110207

REACTIONS (2)
  - ANAL ABSCESS [None]
  - WOUND DEHISCENCE [None]
